FAERS Safety Report 13320344 (Version 1)
Quarter: 2017Q1

REPORT INFORMATION
  Report Type: Spontaneous
  Country: US (occurrence: US)
  Receive Date: 20170310
  Receipt Date: 20170310
  Transmission Date: 20170428
  Serious: Yes (Other)
  Sender: FDA-Public Use
  Company Number: US-CELLTRION INC.-2016US010467

PATIENT

DRUGS (6)
  1. PREDNISONE. [Concomitant]
     Active Substance: PREDNISONE
     Dosage: 5 MG, DAILY (WEANED FROM 30 MG DAILY)
  2. MESALAMINE. [Concomitant]
     Active Substance: MESALAMINE
     Dosage: 800 MG, 3X/DAY
  3. MERCAPTOPURINE. [Concomitant]
     Active Substance: MERCAPTOPURINE
     Dosage: 50 MG, DAILY (NIGHTLY)
  4. PREDNISONE. [Concomitant]
     Active Substance: PREDNISONE
     Dosage: 40 MG, DAILY (UP TO A YEAR)
  5. BALSALAZIDE [Concomitant]
     Active Substance: BALSALAZIDE
     Dosage: 2250 MG, 3X/DAY
  6. INFLECTRA [Suspect]
     Active Substance: INFLIXIMAB-DYYB
     Indication: COLITIS ULCERATIVE
     Dosage: 5 MG/KG PER DOSE, EVERY 8 WEEKS

REACTIONS (1)
  - Drug-induced liver injury [Recovered/Resolved]
